FAERS Safety Report 10369402 (Version 1)
Quarter: 2014Q1

REPORT INFORMATION
  Report Type: Spontaneous
  Country: US (occurrence: None)
  Receive Date: 20140306
  Receipt Date: 20140306
  Transmission Date: 20141002
  Serious: Yes (Hospitalization)
  Sender: FDA-Public Use
  Company Number: 163-21880-13091324

PATIENT
  Age: 56 Year
  Sex: Female

DRUGS (5)
  1. REVLIMID [Suspect]
     Indication: PLASMA CELL MYELOMA
     Dosage: 5 MG, 21 IN 21 D, PO
     Route: 048
     Dates: start: 20130617
  2. COUMADIN (WARFARIN SODIUM) (UNKNOWN) [Concomitant]
  3. ALLOPURINOL (UNKNOWN) [Concomitant]
  4. LIDOCAINE HCL (LIDOCAINE HYDROCHLORIDE) (UNKNOWN) [Concomitant]
  5. POLYMYXIN B - TRIMETHOPRIM (POLYMYXIN B W/TRIMETHOPRIM) (UNKNOWN) [Concomitant]

REACTIONS (1)
  - Deep vein thrombosis [None]
